FAERS Safety Report 12992737 (Version 6)
Quarter: 2017Q1

REPORT INFORMATION
  Report Type: Spontaneous
  Country: NL (occurrence: NL)
  Receive Date: 20161202
  Receipt Date: 20170201
  Transmission Date: 20170428
  Serious: Yes (Other)
  Sender: FDA-Public Use
  Company Number: NL-BEH-2016075560

PATIENT
  Age: 65 Year
  Sex: Female

DRUGS (6)
  1. HAEMATE P [Suspect]
     Active Substance: ANTIHEMOPHILIC FACTOR HUMAN
     Dosage: 1000 IU, 1 VIAL
     Route: 042
     Dates: start: 20150605
  2. HAEMATE P [Suspect]
     Active Substance: ANTIHEMOPHILIC FACTOR HUMAN
     Dosage: 250 IU, 2 VIALS
     Route: 042
     Dates: start: 20150605
  3. HAEMATE P [Suspect]
     Active Substance: ANTIHEMOPHILIC FACTOR HUMAN
     Dosage: 1000 IU, 2 VIALS
     Route: 042
     Dates: start: 20150606
  4. HAEMATE P [Suspect]
     Active Substance: ANTIHEMOPHILIC FACTOR HUMAN
     Indication: ANKLE FRACTURE
     Dosage: 500 IU, 1 VIAL
     Route: 042
     Dates: start: 20150316
  5. HAEMATE P [Suspect]
     Active Substance: ANTIHEMOPHILIC FACTOR HUMAN
     Dosage: 250 IU, 2 VIALS
     Route: 042
     Dates: start: 20150606
  6. HAEMATE P [Suspect]
     Active Substance: ANTIHEMOPHILIC FACTOR HUMAN
     Indication: SURGERY
     Dosage: 1000 IU, 1 VIAL
     Route: 042
     Dates: start: 20150316

REACTIONS (1)
  - Hepatitis E [Recovered/Resolved]

NARRATIVE: CASE EVENT DATE: 201510
